FAERS Safety Report 6081253-3 (Version None)
Quarter: 2009Q1

REPORT INFORMATION
  Report Type: 
  Country: None (occurrence: None)
  Receive Date: 20090213
  Receipt Date: 20090209
  Transmission Date: 20090719
  Serious: Yes (Hospitalization)
  Sender: FDA-Public Use
  Company Number: 029667

PATIENT
  Age: 27 Year
  Sex: Female
  Weight: 72.6 kg

DRUGS (1)
  1. PLAN B [Suspect]
     Indication: POST COITAL CONTRACEPTION
     Dosage: 2 TABLET, SINGLE, ORAL
     Route: 048
     Dates: start: 20080508, end: 20080508

REACTIONS (6)
  - DRUG EXPOSURE DURING PREGNANCY [None]
  - ECTOPIC PREGNANCY [None]
  - OOPHORECTOMY [None]
  - PELVIC PAIN [None]
  - UTERINE HAEMORRHAGE [None]
  - VOMITING [None]
